FAERS Safety Report 9297457 (Version 1)
Quarter: 2013Q2

REPORT INFORMATION
  Report Type: Spontaneous
  Country: US (occurrence: None)
  Receive Date: 20130517
  Receipt Date: 20130517
  Transmission Date: 20140414
  Serious: Yes (Hospitalization)
  Sender: FDA-Public Use
  Company Number: None

PATIENT
  Age: 79 Year
  Sex: Male
  Weight: 92.5 kg

DRUGS (3)
  1. CYCLOPHOSPHAMIDE [Suspect]
  2. DOXORUBICIN HYDROCHLORIDE [Suspect]
  3. ETOPOSIDE (VP-16) [Suspect]

REACTIONS (8)
  - Asthenia [None]
  - Dyspnoea [None]
  - Chills [None]
  - Hypotension [None]
  - Neutropenia [None]
  - Sepsis [None]
  - Stomatitis [None]
  - Caecitis [None]
